FAERS Safety Report 4895752-0 (Version None)
Quarter: 2006Q1

REPORT INFORMATION
  Report Type: 
  Country: None (occurrence: None)
  Receive Date: 20060124
  Receipt Date: 20060103
  Transmission Date: 20060701
  Serious: Yes (Other)
  Sender: FDA-Public Use
  Company Number: 200410505BBE

PATIENT
  Sex: Female

DRUGS (10)
  1. HYPRHO-D [Suspect]
     Indication: PREGNANCY
  2. IMMUNE GLOBULIN (HUMAN) [Suspect]
  3. IMMUNE GLOBULIN (HUMAN) [Suspect]
  4. IMMUNE GLOBULIN (HUMAN) [Suspect]
  5. IMMUNE GLOBULIN (HUMAN) [Suspect]
  6. IMMUNE GLOBULIN (HUMAN) [Suspect]
  7. IMMUNE GLOBULIN (HUMAN) [Suspect]
  8. IMMUNE GLOBULIN (HUMAN) [Suspect]
  9. IMMUNE GLOBULIN (HUMAN) [Suspect]
  10. IMMUNE GLOBULIN (HUMAN) [Suspect]

REACTIONS (16)
  - ADENOIDAL HYPERTROPHY [None]
  - ATTENTION DEFICIT/HYPERACTIVITY DISORDER [None]
  - AUTISM [None]
  - BRONCHIOLITIS [None]
  - BRONCHITIS ACUTE [None]
  - CROUP INFECTIOUS [None]
  - DEVELOPMENTAL DELAY [None]
  - DRUG EXPOSURE DURING PREGNANCY [None]
  - FOETAL TOBACCO EXPOSURE [None]
  - INTERSTITIAL LUNG DISEASE [None]
  - LARYNGEAL STENOSIS [None]
  - METAL POISONING [None]
  - NERVOUS SYSTEM DISORDER [None]
  - OTITIS MEDIA CHRONIC [None]
  - PHARMACEUTICAL PRODUCT COMPLAINT [None]
  - VIRAL PHARYNGITIS [None]
